FAERS Safety Report 8801455 (Version 1)
Quarter: 2012Q4

REPORT INFORMATION
  Report Type: 
  Country: US (occurrence: US)
  Receive Date: 20120921
  Receipt Date: 20120921
  Transmission Date: 20130627
  Serious: Yes (Death)
  Sender: FDA-Public Use
  Company Number: US-ROCHE-1126148

PATIENT
  Sex: Female

DRUGS (2)
  1. AVASTIN [Suspect]
     Indication: RECTOSIGMOID CANCER
     Route: 065
     Dates: start: 2004, end: 200406
  2. AVASTIN [Suspect]
     Indication: ANAL CANCER
     Route: 065
     Dates: start: 200407

REACTIONS (1)
  - Death [Fatal]
